FAERS Safety Report 25622208 (Version 1)
Quarter: 2025Q3

REPORT INFORMATION
  Report Type: Spontaneous
  Country: GB (occurrence: GB)
  Receive Date: 20250730
  Receipt Date: 20250730
  Transmission Date: 20251021
  Serious: Yes (Other)
  Sender: AUROBINDO
  Company Number: GB-MHRA-MED-202507200826267330-JCBZR

PATIENT
  Age: 32 Year
  Weight: 63 kg

DRUGS (1)
  1. METRONIDAZOLE [Suspect]
     Active Substance: METRONIDAZOLE
     Indication: Tooth impacted
     Dosage: 400 MILLIGRAM, 3 TIMES A DAY (400MG 3 X A DAY)
     Route: 065
     Dates: start: 20250715

REACTIONS (3)
  - Migraine [Not Recovered/Not Resolved]
  - Back pain [Not Recovered/Not Resolved]
  - Fatigue [Not Recovered/Not Resolved]

NARRATIVE: CASE EVENT DATE: 20250715
